FAERS Safety Report 22253440 (Version 1)
Quarter: 2023Q2

REPORT INFORMATION
  Report Type: Spontaneous
  Country: RU (occurrence: RU)
  Receive Date: 20230426
  Receipt Date: 20230426
  Transmission Date: 20230721
  Serious: Yes (Hospitalization)
  Sender: FDA-Public Use
  Company Number: RU-002147023-NVSC2023RU089921

PATIENT
  Age: 33 Year
  Sex: Female
  Weight: 62 kg

DRUGS (6)
  1. XOLAIR [Suspect]
     Active Substance: OMALIZUMAB
     Indication: Asthma
     Route: 058
     Dates: start: 20230409, end: 20230409
  2. CARBAMAZEPINE [Concomitant]
     Active Substance: CARBAMAZEPINE
     Dosage: 200 MG
     Route: 065
     Dates: start: 202301
  3. CLONAZEPAM [Concomitant]
     Active Substance: CLONAZEPAM
     Dosage: 2 MG
     Route: 065
     Dates: start: 202301
  4. FYCOMPA [Concomitant]
     Active Substance: PERAMPANEL
     Dosage: 2 MG
     Route: 065
     Dates: start: 202301
  5. VIMPAT [Concomitant]
     Active Substance: LACOSAMIDE
     Dosage: 150 MG
     Route: 065
     Dates: start: 202301
  6. TIZANIDINE [Concomitant]
     Active Substance: TIZANIDINE
     Dosage: 6 MG
     Route: 065
     Dates: start: 202301

REACTIONS (1)
  - Angioedema [Recovering/Resolving]

NARRATIVE: CASE EVENT DATE: 20230409
